FAERS Safety Report 9698065 (Version 2)
Quarter: 2013Q4

REPORT INFORMATION
  Report Type: Report from Study
  Country: CA (occurrence: CA)
  Receive Date: 20131120
  Receipt Date: 20131126
  Transmission Date: 20140711
  Serious: Yes (Hospitalization)
  Sender: FDA-Public Use
  Company Number: CA-UCBSA-103503

PATIENT
  Age: 54 Year
  Sex: Female
  Weight: 73 kg

DRUGS (4)
  1. CIMZIA [Suspect]
     Indication: RHEUMATOID ARTHRITIS
     Route: 058
     Dates: start: 20130107, end: 20130204
  2. CIMZIA [Suspect]
     Indication: RHEUMATOID ARTHRITIS
     Route: 058
     Dates: start: 20130218, end: 2013
  3. CIMZIA [Suspect]
     Indication: RHEUMATOID ARTHRITIS
     Dates: start: 2013
  4. HCZ [Concomitant]

REACTIONS (6)
  - Small intestinal obstruction [Unknown]
  - Abdominal pain [Recovering/Resolving]
  - Chills [Unknown]
  - Hyperhidrosis [Unknown]
  - Swelling [Recovered/Resolved]
  - Pruritus [Recovered/Resolved]
